FAERS Safety Report 8552066-5 (Version None)
Quarter: 2012Q3

REPORT INFORMATION
  Report Type: 
  Country: None (occurrence: None)
  Receive Date: 20120731
  Receipt Date: 20120723
  Transmission Date: 20120928
  Serious: Yes (Hospitalization)
  Sender: FDA-Public Use
  Company Number: US-BIOGENIDEC-2008BI034707

PATIENT
  Age: 57 Year
  Sex: Female

DRUGS (5)
  1. AVONEX [Suspect]
     Indication: MULTIPLE SCLEROSIS
     Route: 030
     Dates: start: 20020802, end: 20080930
  2. AVONEX [Suspect]
     Route: 030
     Dates: start: 20110928
  3. WELLBUTRIN [Concomitant]
     Indication: DEPRESSION
  4. AVONEX [Suspect]
     Route: 030
     Dates: start: 20090714, end: 20110723
  5. BENADRYL [Concomitant]
     Indication: PREMEDICATION

REACTIONS (8)
  - MUSCULAR WEAKNESS [None]
  - FALL [None]
  - GAIT DISTURBANCE [None]
  - JOINT SWELLING [None]
  - LOSS OF CONTROL OF LEGS [None]
  - CEREBROVASCULAR ACCIDENT [None]
  - MUSCLE TIGHTNESS [None]
  - PAIN IN EXTREMITY [None]
